FAERS Safety Report 7942979-7 (Version None)
Quarter: 2011Q4

REPORT INFORMATION
  Report Type: 
  Country: None (occurrence: None)
  Receive Date: 20111128
  Receipt Date: 20111116
  Transmission Date: 20120403
  Serious: Yes (Other)
  Sender: FDA-Public Use
  Company Number: US-BRACCO-007151

PATIENT
  Sex: Female

DRUGS (1)
  1. CARDIOGEN-82 [Suspect]
     Indication: DIAGNOSTIC PROCEDURE
     Dates: start: 20110201, end: 20110201

REACTIONS (3)
  - RADIATION EXPOSURE [None]
  - TOOTH LOSS [None]
  - ALOPECIA [None]
